FAERS Safety Report 12302092 (Version 2)
Quarter: 2019Q1

REPORT INFORMATION
  Report Type: Spontaneous
  Country: US (occurrence: US)
  Receive Date: 20160425
  Receipt Date: 20190102
  Transmission Date: 20190417
  Serious: No
  Sender: FDA-Public Use
  Company Number: US-ASTRAZENECA-2016SE30081

PATIENT
  Sex: Male
  Weight: 92.1 kg

DRUGS (1)
  1. BYDUREON [Suspect]
     Active Substance: EXENATIDE
     Indication: TYPE 2 DIABETES MELLITUS
     Route: 058
     Dates: start: 20150903

REACTIONS (3)
  - Body height decreased [Unknown]
  - Product storage error [Recovered/Resolved]
  - Blood glucose increased [Unknown]
